FAERS Safety Report 18559889 (Version 1)
Quarter: 2020Q4

REPORT INFORMATION
  Report Type: Spontaneous
  Country: FR (occurrence: FR)
  Receive Date: 20201130
  Receipt Date: 20201130
  Transmission Date: 20210114
  Serious: Yes (Other)
  Sender: FDA-Public Use
  Company Number: FR-PFIZER INC-2020466410

PATIENT
  Age: 21 Year
  Sex: Female

DRUGS (2)
  1. IBUPROFEN. [Suspect]
     Active Substance: IBUPROFEN
     Dosage: 1 DF
     Route: 048
     Dates: start: 20200612, end: 20200612
  2. FLURBIPROFEN. [Suspect]
     Active Substance: FLURBIPROFEN
     Dosage: 1 DF
     Route: 048
     Dates: start: 2020, end: 2020

REACTIONS (3)
  - Urticaria [Recovered/Resolved]
  - Symptom recurrence [Recovered/Resolved]
  - Eyelid oedema [Recovered/Resolved]

NARRATIVE: CASE EVENT DATE: 2020
